FAERS Safety Report 4326923-X (Version None)
Quarter: 2004Q1

REPORT INFORMATION
  Report Type: 
  Country: None (occurrence: None)
  Receive Date: 20040330
  Receipt Date: 20040324
  Transmission Date: 20041129
  Serious: Yes (Hospitalization)
  Sender: FDA-Public Use
  Company Number: IT-ROCHE-362759

PATIENT
  Age: 61 Year
  Sex: Male

DRUGS (2)
  1. ROCEPHIN [Suspect]
     Route: 042
     Dates: start: 20040222, end: 20040226
  2. LASIX [Concomitant]
     Route: 042
     Dates: start: 20040222, end: 20040322

REACTIONS (1)
  - SKIN DESQUAMATION [None]
